FAERS Safety Report 13739205 (Version 3)
Quarter: 2017Q3

REPORT INFORMATION
  Report Type: Report from Study
  Country: US (occurrence: US)
  Receive Date: 20170710
  Receipt Date: 20170927
  Transmission Date: 20171127
  Serious: Yes (Other)
  Sender: FDA-Public Use
  Company Number: US-SAOL THERAPEUTICS-2017SAO01056

PATIENT
  Age: 41 Year
  Sex: Female
  Weight: 99.32 kg

DRUGS (4)
  1. MORPHINE [Suspect]
     Active Substance: MORPHINE
     Dosage: 0.7062 MG, \DAY
     Route: 037
     Dates: start: 20170426
  2. BACLOFEN. [Suspect]
     Active Substance: BACLOFEN
     Dosage: 423.7 ?G, \DAY
     Route: 037
     Dates: start: 20170426
  3. MORPHINE [Suspect]
     Active Substance: MORPHINE
     Dosage: 0.811 MG, \DAY
     Route: 037
     Dates: start: 20170426
  4. BACLOFEN. [Suspect]
     Active Substance: BACLOFEN
     Dosage: 486.6 ?G, \DAY
     Route: 037
     Dates: start: 20170426

REACTIONS (5)
  - Device failure [Not Recovered/Not Resolved]
  - Pain in extremity [Not Recovered/Not Resolved]
  - Hypoaesthesia [Not Recovered/Not Resolved]
  - Paraesthesia [Not Recovered/Not Resolved]
  - Haemangioma of bone [Unknown]

NARRATIVE: CASE EVENT DATE: 2017
